FAERS Safety Report 11642308 (Version 2)
Quarter: 2016Q2

REPORT INFORMATION
  Report Type: Report from Study
  Country: US (occurrence: US)
  Receive Date: 20151019
  Receipt Date: 20160512
  Transmission Date: 20160815
  Serious: Yes (Hospitalization, Other)
  Sender: FDA-Public Use
  Company Number: US-BRISTOL-MYERS SQUIBB COMPANY-BMS-2015-063472

PATIENT
  Sex: Male

DRUGS (1)
  1. BELATACEPT [Suspect]
     Active Substance: BELATACEPT
     Indication: RENAL TRANSPLANT
     Dosage: UNK
     Route: 065

REACTIONS (5)
  - Incision site haematoma [Unknown]
  - Wound dehiscence [Recovering/Resolving]
  - Delayed graft function [Unknown]
  - Packed red blood cell transfusion [Unknown]
  - Anaemia [Recovering/Resolving]
